FAERS Safety Report 22900968 (Version 3)
Quarter: 2024Q3

REPORT INFORMATION
  Report Type: Report from Study
  Country: US (occurrence: US)
  Receive Date: 20230904
  Receipt Date: 20240819
  Transmission Date: 20241016
  Serious: No
  Sender: NOVARTIS
  Company Number: US-SANDOZ-SDZ2023US022020

PATIENT
  Sex: Female

DRUGS (4)
  1. ENTRESTO [Suspect]
     Active Substance: SACUBITRIL\VALSARTAN
     Indication: Product used for unknown indication
     Dosage: 24/26 MG, BID (7-9AM AND THE EVENING DOSE BETWEEN 8-9PM)
     Route: 048
     Dates: start: 2023
  2. ENTRESTO [Suspect]
     Active Substance: SACUBITRIL\VALSARTAN
     Dosage: UNK (49/51 MG)
     Route: 065
  3. CARVEDILOL [Suspect]
     Active Substance: CARVEDILOL
     Indication: Hypertension
     Dosage: UNK UNK, BID
     Route: 065
  4. TORSEMIDE [Suspect]
     Active Substance: TORSEMIDE
     Indication: Hypertension
     Dosage: UNK
     Route: 065

REACTIONS (7)
  - Fatigue [Unknown]
  - Asthenia [Recovering/Resolving]
  - Cough [Unknown]
  - Sleep disorder [Unknown]
  - Concomitant disease aggravated [Unknown]
  - Nasopharyngitis [Unknown]
  - Incorrect dose administered [Unknown]
